FAERS Safety Report 5018817-1 (Version None)
Quarter: 2006Q2

REPORT INFORMATION
  Report Type: 
  Country: None (occurrence: None)
  Receive Date: 20060531
  Receipt Date: 20060518
  Transmission Date: 20061013
  Serious: Yes (Other)
  Sender: FDA-Public Use
  Company Number: 200602216

PATIENT
  Age: 33 Year
  Sex: Male

DRUGS (2)
  1. ACULAR [Suspect]
     Indication: PROCEDURAL PAIN
     Dosage: 2GTT, QID, OPHTHALMIC
     Route: 047
     Dates: start: 20060210, end: 20060214
  2. VIGAMOX [Suspect]
     Dosage: 2GTT, TID, OPHTHALMIC
     Route: 047
     Dates: start: 20060210, end: 20060214

REACTIONS (4)
  - CORNEAL OPACITY [None]
  - CORNEAL SCAR [None]
  - ULCERATIVE KERATITIS [None]
  - VISUAL ACUITY REDUCED [None]
